FAERS Safety Report 9669762 (Version 1)
Quarter: 2013Q4

REPORT INFORMATION
  Report Type: Report from Study
  Country: CA (occurrence: CA)
  Receive Date: 20131105
  Receipt Date: 20131105
  Transmission Date: 20140711
  Serious: Yes (Hospitalization)
  Sender: FDA-Public Use
  Company Number: CA-BAXTER-2013BAX042380

PATIENT
  Age: 49 Year
  Sex: Female
  Weight: 103.1 kg

DRUGS (27)
  1. PROCYTOX (CYCLOPHOSPHAMIDE) 1000MG/VIAL [Suspect]
     Indication: BREAST CANCER
     Route: 065
  2. TRASTUZUMAB [Suspect]
     Indication: BREAST CANCER
     Route: 042
     Dates: start: 20130821
  3. TRASTUZUMAB [Suspect]
     Route: 042
     Dates: start: 20130821
  4. TRASTUZUMAB [Suspect]
     Route: 042
     Dates: start: 20130821
  5. TRASTUZUMAB [Suspect]
     Route: 042
     Dates: start: 20130911
  6. TRASTUZUMAB [Suspect]
     Route: 042
     Dates: start: 20131002, end: 20131009
  7. PERTUZUMAB [Suspect]
     Indication: BREAST CANCER
     Route: 042
     Dates: start: 20130911
  8. PERTUZUMAB [Suspect]
     Route: 042
     Dates: start: 20130911
  9. PERTUZUMAB [Suspect]
     Route: 042
     Dates: start: 20131002, end: 20131009
  10. PACLITAXEL [Suspect]
     Indication: BREAST CANCER
     Route: 042
     Dates: start: 20130911
  11. PACLITAXEL [Suspect]
     Route: 042
     Dates: start: 20131002, end: 20131009
  12. DOXORUBICIN [Suspect]
     Indication: BREAST CANCER
     Route: 065
  13. FISH OIL [Concomitant]
     Indication: BREAST CANCER
     Dosage: 1/1 TABLET
     Route: 065
  14. VITAMIN B [Concomitant]
     Indication: PRODUCT USED FOR UNKNOWN INDICATION
     Route: 065
     Dates: start: 2005
  15. VITAMIN D [Concomitant]
     Indication: PRODUCT USED FOR UNKNOWN INDICATION
     Route: 065
     Dates: start: 2005
  16. FOSAPREPITANT [Concomitant]
     Indication: PRODUCT USED FOR UNKNOWN INDICATION
     Route: 065
     Dates: start: 20130731, end: 20130731
  17. DEXAMETHASONE [Concomitant]
     Indication: PRODUCT USED FOR UNKNOWN INDICATION
     Route: 065
     Dates: start: 20130731, end: 20130731
  18. DEXAMETHASONE [Concomitant]
     Route: 065
     Dates: start: 20130801, end: 20130803
  19. ONDANSETRON [Concomitant]
     Indication: PRODUCT USED FOR UNKNOWN INDICATION
     Route: 065
     Dates: start: 20130731, end: 20130731
  20. ONDANSETRON [Concomitant]
     Route: 065
     Dates: start: 20130731, end: 20130803
  21. RANITIDINE [Concomitant]
     Indication: PRODUCT USED FOR UNKNOWN INDICATION
     Route: 065
     Dates: start: 20130811, end: 20130812
  22. MULTIVITAMINS [Concomitant]
     Indication: PRODUCT USED FOR UNKNOWN INDICATION
     Route: 065
     Dates: start: 20130709
  23. DILANTIN [Concomitant]
     Indication: PRODUCT USED FOR UNKNOWN INDICATION
     Route: 065
     Dates: start: 20130812
  24. DILANTIN [Concomitant]
     Route: 065
     Dates: start: 201308
  25. METOPROLOL [Concomitant]
     Indication: PRODUCT USED FOR UNKNOWN INDICATION
     Route: 065
     Dates: start: 201308
  26. LEVETIRACETAM [Concomitant]
     Indication: PRODUCT USED FOR UNKNOWN INDICATION
     Route: 065
     Dates: start: 20130904
  27. TINZAPARIN SODIUM [Concomitant]
     Indication: PRODUCT USED FOR UNKNOWN INDICATION
     Dosage: 4500 UNITS
     Route: 065
     Dates: start: 20130801, end: 20130810

REACTIONS (6)
  - Convulsion [Recovered/Resolved]
  - Palpitations [Recovering/Resolving]
  - Chest pain [Recovered/Resolved]
  - Convulsion [Recovered/Resolved]
  - Convulsion [Recovered/Resolved]
  - Convulsion [Recovered/Resolved]
